FAERS Safety Report 19477062 (Version 3)
Quarter: 2021Q3

REPORT INFORMATION
  Report Type: Spontaneous
  Country: US (occurrence: US)
  Receive Date: 20210630
  Receipt Date: 20210728
  Transmission Date: 20211014
  Serious: Yes (Other)
  Sender: FDA-Public Use
  Company Number: US-PFIZER INC-2021515710

PATIENT
  Age: 74 Year
  Sex: Female

DRUGS (3)
  1. INLYTA [Suspect]
     Active Substance: AXITINIB
     Dosage: 1 MG
     Dates: start: 20210421, end: 20210623
  2. INLYTA [Suspect]
     Active Substance: AXITINIB
     Dosage: 5 MG
     Dates: start: 20210420, end: 20210514
  3. INLYTA [Suspect]
     Active Substance: AXITINIB
     Dosage: 5 MG
     Dates: start: 20210501

REACTIONS (4)
  - Abdominal distension [Unknown]
  - Hepatic enzyme increased [Unknown]
  - Dysuria [Unknown]
  - Respiratory arrest [Unknown]

NARRATIVE: CASE EVENT DATE: 2021
